FAERS Safety Report 7552647-1 (Version None)
Quarter: 2011Q2

REPORT INFORMATION
  Report Type: 
  Country: None (occurrence: None)
  Receive Date: 20110616
  Receipt Date: 20110606
  Transmission Date: 20111010
  Serious: Yes (Hospitalization, Other)
  Sender: FDA-Public Use
  Company Number: FR-UCBSA-034622

PATIENT
  Sex: Female

DRUGS (14)
  1. TOT'HEMA [Suspect]
     Indication: ANAEMIA PROPHYLAXIS
     Route: 048
  2. KEPPRA [Suspect]
     Route: 048
     Dates: start: 20110526
  3. TETRALYSAL [Suspect]
     Indication: LUNG DISORDER
     Route: 048
     Dates: start: 20110316
  4. TETRALYSAL [Suspect]
     Route: 048
     Dates: start: 20110509, end: 20110519
  5. SERETIDE 250 [Concomitant]
     Dosage: 1 PUFF TWICE DAILY
  6. VALPROATE SODIUM [Suspect]
     Indication: RETT'S DISORDER
     Route: 048
     Dates: end: 20110525
  7. CEFIXIME [Suspect]
     Indication: LUNG DISORDER
     Route: 048
     Dates: start: 20110302, end: 20110311
  8. ENDOTELON [Concomitant]
     Dosage: 1 UNIT DAILY 15 DAYS MONTHLY
  9. NEXIUM [Suspect]
     Indication: EROSIVE OESOPHAGITIS
     Route: 048
  10. CLONAZEPAM [Concomitant]
  11. KEPPRA [Suspect]
     Route: 048
     Dates: end: 20110525
  12. VALPROATE SODIUM [Suspect]
     Route: 048
     Dates: start: 20110526
  13. FOLIC ACID [Concomitant]
  14. MELAXOSE [Concomitant]

REACTIONS (3)
  - PANCREATITIS ACUTE [None]
  - LUNG DISORDER [None]
  - WHITE BLOOD CELL COUNT INCREASED [None]
